FAERS Safety Report 6269361-5 (Version None)
Quarter: 2009Q3

REPORT INFORMATION
  Report Type: 
  Country: None (occurrence: None)
  Receive Date: 20090713
  Receipt Date: 20090703
  Transmission Date: 20100115
  Serious: Yes (Hospitalization)
  Sender: FDA-Public Use
  Company Number: FABR-1000883

PATIENT
  Age: 50 Year
  Sex: Male

DRUGS (4)
  1. FABRAZYME (AGALSIDASE BETA) POWDER [Suspect]
     Indication: FABRY'S DISEASE
     Dosage: 60 MG, Q2W; INTRAVENOUS
     Route: 042
     Dates: start: 20040826
  2. TACROLIMUS [Concomitant]
  3. MIZORIBINE (MIZORIBINE) [Concomitant]
  4. PREDNISOLONE [Concomitant]

REACTIONS (1)
  - ALTERED STATE OF CONSCIOUSNESS [None]
